FAERS Safety Report 9153467 (Version 3)
Quarter: 2013Q2

REPORT INFORMATION
  Report Type: Spontaneous
  Country: JP (occurrence: JP)
  Receive Date: 20130311
  Receipt Date: 20130520
  Transmission Date: 20140414
  Serious: Yes (Hospitalization)
  Sender: FDA-Public Use
  Company Number: JP-CELGENEUS-087-21660-13030987

PATIENT
  Age: 59 Year
  Sex: Female
  Weight: 59 kg

DRUGS (3)
  1. ABRAXANE [Suspect]
     Indication: BREAST CANCER METASTATIC
     Dosage: 240 MILLIGRAM
     Route: 065
     Dates: start: 20120621, end: 20121220
  2. DECADRON [Concomitant]
     Indication: GASTROINTESTINAL DISORDER
     Dosage: 8.25 MILLIGRAM
     Route: 041
     Dates: start: 20120621, end: 20121220
  3. RANMARK [Concomitant]
     Indication: METASTASES TO BONE
     Dosage: 120 MILLIGRAM
     Route: 058
     Dates: start: 20121108, end: 20121213

REACTIONS (7)
  - VIIth nerve paralysis [Recovering/Resolving]
  - Skin disorder [Recovering/Resolving]
  - Nausea [Recovered/Resolved]
  - Hypoaesthesia [Not Recovered/Not Resolved]
  - Pain [Not Recovered/Not Resolved]
  - Oedema [Unknown]
  - Rash [Recovered/Resolved]
